FAERS Safety Report 9333648 (Version 1)
Quarter: 2013Q2

REPORT INFORMATION
  Report Type: Report from Study
  Country: US (occurrence: US)
  Receive Date: 20130606
  Receipt Date: 20130606
  Transmission Date: 20140414
  Serious: Yes (Hospitalization)
  Sender: FDA-Public Use
  Company Number: US-JNJFOC-20130522123

PATIENT
  Age: 56 Year
  Sex: Male
  Weight: 106.6 kg

DRUGS (5)
  1. SIMPONI [Suspect]
     Indication: RHEUMATOID ARTHRITIS
     Route: 058
     Dates: start: 2012, end: 201302
  2. ALL OTHER THERAPEUTIC PRODUCTS [Suspect]
     Indication: CLOSTRIDIUM DIFFICILE INFECTION
  3. METHOTREXATE [Concomitant]
     Indication: RHEUMATOID ARTHRITIS
     Route: 048
     Dates: start: 2009
  4. CYMBALTA [Concomitant]
     Indication: RHEUMATOID ARTHRITIS
     Route: 048
     Dates: start: 2009
  5. LIPITOR [Concomitant]
     Route: 048

REACTIONS (5)
  - Gallbladder non-functioning [Recovered/Resolved]
  - Hernia [Recovered/Resolved]
  - Incision site infection [Recovered/Resolved]
  - Clostridium difficile infection [Recovered/Resolved]
  - Motor dysfunction [Not Recovered/Not Resolved]
